FAERS Safety Report 12944224 (Version 2)
Quarter: 2016Q4

REPORT INFORMATION
  Report Type: Spontaneous
  Country: DE (occurrence: DE)
  Receive Date: 20161115
  Receipt Date: 20161122
  Transmission Date: 20170207
  Serious: No
  Sender: FDA-Public Use
  Company Number: DE-BIOGEN-2016BI00317454

PATIENT
  Sex: Female

DRUGS (1)
  1. TECFIDERA [Suspect]
     Active Substance: DIMETHYL FUMARATE
     Indication: MULTIPLE SCLEROSIS
     Route: 048
     Dates: start: 2014

REACTIONS (5)
  - Skin tightness [Unknown]
  - Rash [Unknown]
  - Neurodermatitis [Unknown]
  - Erythema [Unknown]
  - Skin burning sensation [Unknown]
